FAERS Safety Report 18480749 (Version 1)
Quarter: 2020Q4

REPORT INFORMATION
  Report Type: Spontaneous
  Country: CN (occurrence: CN)
  Receive Date: 20201109
  Receipt Date: 20201109
  Transmission Date: 20210114
  Serious: Yes (Other)
  Sender: FDA-Public Use
  Company Number: CN-TOPROL-202000062

PATIENT
  Age: 37 Year
  Sex: Male
  Weight: 80 kg

DRUGS (3)
  1. BETALOC ZOK [Suspect]
     Active Substance: METOPROLOL SUCCINATE
     Indication: HYPERTENSION
     Dosage: 1 DF UNK, SUSTAINED RELEASE TABLET
     Route: 048
     Dates: start: 2017, end: 2019
  2. BETALOC ZOK [Suspect]
     Active Substance: METOPROLOL SUCCINATE
     Indication: HYPERTENSION
     Dosage: HALF TABLET, SUSTAINED RELEASE TABLET
     Route: 048
     Dates: start: 2020
  3. BETALOC [Suspect]
     Active Substance: METOPROLOL
     Indication: HYPERTENSION
     Dosage: HALF TABLET EACH TIME, TWICE A DAY
     Route: 048

REACTIONS (8)
  - Dizziness [Recovered/Resolved]
  - Drug ineffective [Not Recovered/Not Resolved]
  - Heart rate decreased [Recovered/Resolved]
  - Extrasystoles [Not Recovered/Not Resolved]
  - Spinal osteoarthritis [Recovering/Resolving]
  - Hepatic steatosis [Unknown]
  - Lipids increased [Unknown]
  - Weight decreased [Unknown]

NARRATIVE: CASE EVENT DATE: 2017
